FAERS Safety Report 16497788 (Version 1)
Quarter: 2019Q2

REPORT INFORMATION
  Report Type: Spontaneous
  Country: CA (occurrence: CA)
  Receive Date: 20190628
  Receipt Date: 20190628
  Transmission Date: 20190711
  Serious: Yes (Hospitalization, Other)
  Sender: FDA-Public Use
  Company Number: CA-TEVA-2019-CA-1069120

PATIENT
  Age: 92 Year
  Sex: Male

DRUGS (1)
  1. BISOPROLOL [Suspect]
     Active Substance: BISOPROLOL
     Indication: HEART RATE IRREGULAR
     Route: 065

REACTIONS (3)
  - Dyspnoea [Unknown]
  - Atrial fibrillation [Unknown]
  - Treatment noncompliance [Unknown]
